FAERS Safety Report 15173216 (Version 2)
Quarter: 2018Q3

REPORT INFORMATION
  Report Type: Report from Study
  Country: JP (occurrence: JP)
  Receive Date: 20180720
  Receipt Date: 20180723
  Transmission Date: 20181010
  Serious: Yes (Other)
  Sender: FDA-Public Use
  Company Number: JP-SA-2018SA194706

PATIENT
  Age: 48 Year
  Sex: Male

DRUGS (9)
  1. LIXISENATIDE [Suspect]
     Active Substance: LIXISENATIDE
     Dosage: BEFORE BREAKFAST, 20 UG
     Route: 058
     Dates: start: 20150614, end: 20150711
  2. CANAGLU [Concomitant]
     Active Substance: CANAGLIFLOZIN
     Indication: PRODUCT USED FOR UNKNOWN INDICATION
     Dosage: MORNING, 100 MG, QD
     Route: 048
     Dates: start: 20161210
  3. METGLUCO [Concomitant]
     Active Substance: METFORMIN HYDROCHLORIDE
     Indication: PRODUCT USED FOR UNKNOWN INDICATION
     Dosage: MORNING, EVENING, 750 MG, BID
     Route: 048
  4. INSULIN GLARGINE BS [Concomitant]
     Active Substance: INSULIN GLARGINE
     Indication: PRODUCT USED FOR UNKNOWN INDICATION
     Dosage: BEFORE BEDTIME, 22 U, QD
     Route: 058
     Dates: start: 20151115, end: 20171210
  5. LIXISENATIDE [Suspect]
     Active Substance: LIXISENATIDE
     Indication: TYPE 2 DIABETES MELLITUS
     Dosage: BEFORE BREAKFAST, 15 UG
     Route: 058
     Dates: start: 20150712, end: 20171210
  6. LIXISENATIDE [Suspect]
     Active Substance: LIXISENATIDE
     Dosage: BEFORE BREAKFAST, 15 UG
     Route: 058
     Dates: start: 20150607, end: 20150613
  7. LIXISENATIDE [Suspect]
     Active Substance: LIXISENATIDE
     Dosage: BEFORE BREAKFAST, 10 UG
     Route: 058
     Dates: start: 20150531, end: 20150606
  8. GLIMEPIRIDE. [Concomitant]
     Active Substance: GLIMEPIRIDE
     Indication: PRODUCT USED FOR UNKNOWN INDICATION
     Dosage: MORNING, 0.5 MG, QD
     Route: 048
  9. GLIMEPIRIDE. [Concomitant]
     Active Substance: GLIMEPIRIDE
     Dosage: MORNING, 1 MG, QD
     Route: 048
     Dates: start: 20160605

REACTIONS (1)
  - Diabetes mellitus inadequate control [Recovering/Resolving]

NARRATIVE: CASE EVENT DATE: 20171209
